FAERS Safety Report 14960656 (Version 1)
Quarter: 2018Q2

REPORT INFORMATION
  Report Type: Report from Study
  Country: US (occurrence: US)
  Receive Date: 20180531
  Receipt Date: 20180531
  Transmission Date: 20180711
  Serious: No
  Sender: FDA-Public Use
  Company Number: US-AMGEN-USASL2018005019

PATIENT
  Age: 72 Year
  Sex: Female

DRUGS (1)
  1. REPATHA [Suspect]
     Active Substance: EVOLOCUMAB
     Indication: TYPE V HYPERLIPIDAEMIA
     Dosage: 140 MG, UNK
     Route: 058
     Dates: end: 201712

REACTIONS (4)
  - Decreased appetite [Recovered/Resolved]
  - Arthralgia [Unknown]
  - Weight decreased [Unknown]
  - Pruritus generalised [Recovered/Resolved]
